FAERS Safety Report 20712885 (Version 1)
Quarter: 2022Q2

REPORT INFORMATION
  Report Type: Spontaneous
  Country: GB (occurrence: GB)
  Receive Date: 20220415
  Receipt Date: 20220415
  Transmission Date: 20220720
  Serious: Yes (Other)
  Sender: FDA-Public Use
  Company Number: GB-JAZZ-2022-GB-011110

PATIENT

DRUGS (1)
  1. VYXEOS [Suspect]
     Active Substance: CYTARABINE\DAUNORUBICIN
     Indication: Acute myeloid leukaemia refractory

REACTIONS (4)
  - Gastrointestinal toxicity [Unknown]
  - Mucosal inflammation [Unknown]
  - Malabsorption [Unknown]
  - Parenteral nutrition [Unknown]
